FAERS Safety Report 18510310 (Version 1)
Quarter: 2020Q4

REPORT INFORMATION
  Report Type: Spontaneous
  Country: DE (occurrence: DE)
  Receive Date: 20201117
  Receipt Date: 20201117
  Transmission Date: 20210114
  Serious: Yes (Hospitalization)
  Sender: FDA-Public Use
  Company Number: DE-TEVA-2020-DE-1848565

PATIENT
  Age: 78 Year
  Sex: Male

DRUGS (20)
  1. IBRUTINIB [Concomitant]
     Active Substance: IBRUTINIB
     Dosage: 560 MILLIGRAM DAILY;  1-0-0-0
  2. FENTANYL 37,5 MICROGRAMM/H [Concomitant]
     Dosage: 37.5 MCG / H, CHANGE EVERY 3D, 1 DF
  3. VORICONAZOL [Concomitant]
     Active Substance: VORICONAZOLE
     Dosage: 400 MILLIGRAM DAILY;  1-0-1-0
  4. VINCRISTIN [Suspect]
     Active Substance: VINCRISTINE
     Route: 065
  5. IBRUTINIB [Concomitant]
     Active Substance: IBRUTINIB
     Dosage: 560 MG
     Dates: start: 20200729
  6. CANDESARTAN. [Concomitant]
     Active Substance: CANDESARTAN
     Dosage: 16 MILLIGRAM DAILY;  1-0-0-0
  7. COTRIMOXAZOL [Concomitant]
     Active Substance: SULFAMETHOXAZOLE\TRIMETHOPRIM
     Dosage: 960 MILLIGRAM DAILY;  1-0-0-0
  8. DEXAMETHASON [Concomitant]
     Active Substance: DEXAMETHASONE
     Dosage: 2 MILLIGRAM DAILY;  1-0-0-0
  9. METAMIZOL [Concomitant]
     Active Substance: METAMIZOLE SODIUM
     Dosage: REQUIREMENT
  10. AMLODIPIN [Concomitant]
     Active Substance: AMLODIPINE BESYLATE
     Dosage: 10 MILLIGRAM DAILY; , 0-0-1-0
  11. IBRUTINIB [Suspect]
     Active Substance: IBRUTINIB
     Dosage: 560 MG
     Dates: start: 20200729
  12. ALLOPURINOL. [Concomitant]
     Active Substance: ALLOPURINOL
     Dosage: 300 MILLIGRAM DAILY;  1-0-0-0
  13. METOPROLOL. [Concomitant]
     Active Substance: METOPROLOL
     Dosage: 95 MILLIGRAM DAILY; 23.75 MG, 2-0-2-0
  14. METOCLOPRAMID [Concomitant]
     Active Substance: METOCLOPRAMIDE
     Dosage: 10 MG,  REQUIREMENT
  15. PANTOPRAZOL [Concomitant]
     Active Substance: PANTOPRAZOLE SODIUM
     Dosage: 40 MILLIGRAM DAILY;  1-0-0-0
  16. TRIMIPRAMIN [Concomitant]
     Active Substance: TRIMIPRAMINE
     Dosage: 100 MILLIGRAM DAILY;  0-0-1-0
  17. BORTEZOMIB. [Suspect]
     Active Substance: BORTEZOMIB
     Route: 065
  18. ASS 100 [Concomitant]
     Active Substance: ASPIRIN
     Dosage: 100 MILLIGRAM DAILY;  0-1-0-0
  19. COLECALCIFEROL (VITAMIN D) [Concomitant]
     Dosage: 1000 IU (INTERNATIONAL UNIT) DAILY;  1-0-0-0
  20. MOVICOL [Concomitant]
     Active Substance: POLYETHYLENE GLYCOL 3350\POTASSIUM CHLORIDE\SODIUM BICARBONATE\SODIUM CHLORIDE
     Dosage: 2 DOSAGE FORMS DAILY; 1-1-0-0

REACTIONS (5)
  - Polyneuropathy [Unknown]
  - General physical health deterioration [Unknown]
  - Dizziness [Unknown]
  - Decreased appetite [Unknown]
  - Back pain [Unknown]
